FAERS Safety Report 18532825 (Version 1)
Quarter: 2020Q4

REPORT INFORMATION
  Report Type: Spontaneous
  Country: US (occurrence: US)
  Receive Date: 20201123
  Receipt Date: 20201123
  Transmission Date: 20210114
  Serious: No
  Sender: FDA-Public Use
  Company Number: US-JNJFOC-20201115232

PATIENT
  Sex: Female

DRUGS (1)
  1. WOMENS ROGAINE UNSCENTED [Suspect]
     Active Substance: MINOXIDIL
     Indication: ALOPECIA
     Dosage: 1 PUMP FOR ALL OF THEM?PRODUCT LAST USED DATE REPORTED TO BE 02-NOV-2020
     Route: 061
     Dates: start: 20200501

REACTIONS (3)
  - Alopecia [Recovered/Resolved]
  - Incorrect dose administered [Unknown]
  - Hair growth abnormal [Recovered/Resolved]

NARRATIVE: CASE EVENT DATE: 2020
